FAERS Safety Report 7064099-9 (Version None)
Quarter: 2010Q4

REPORT INFORMATION
  Report Type: 
  Country: None (occurrence: None)
  Receive Date: 20101027
  Receipt Date: 20101018
  Transmission Date: 20110411
  Serious: Yes (Hospitalization, Other)
  Sender: FDA-Public Use
  Company Number: US-ELI_LILLY_AND_COMPANY-US201004000725

PATIENT
  Sex: Female
  Weight: 106.12 kg

DRUGS (8)
  1. BYETTA [Suspect]
     Dosage: 5 UG, 2/D
     Route: 058
     Dates: start: 20080201, end: 20080424
  2. GLIMEPIRIDE [Concomitant]
     Indication: TYPE 2 DIABETES MELLITUS
     Dates: start: 20070501, end: 20080401
  3. PREMARIN [Concomitant]
     Dates: start: 20061001, end: 20080401
  4. FUROSEMIDE [Concomitant]
     Indication: OEDEMA
     Dates: start: 20070701
  5. LOVASTATIN [Concomitant]
     Indication: BLOOD CHOLESTEROL INCREASED
     Dates: start: 20061001, end: 20090401
  6. LISINOPRIL [Concomitant]
  7. POTASSIUM CHLORIDE [Concomitant]
  8. MAGNESIUM [Concomitant]

REACTIONS (4)
  - HYPERTRIGLYCERIDAEMIA [None]
  - PANCREATITIS ACUTE [None]
  - PANCREATITIS CHRONIC [None]
  - WEIGHT DECREASED [None]
